FAERS Safety Report 14563641 (Version 2)
Quarter: 2018Q1

REPORT INFORMATION
  Report Type: Spontaneous
  Country: HU (occurrence: HU)
  Receive Date: 20180222
  Receipt Date: 20180328
  Transmission Date: 20180509
  Serious: Yes (Death, Hospitalization, Other)
  Sender: FDA-Public Use
  Company Number: HU-INDIVIOR LIMITED-INDV-109108-2018

PATIENT
  Sex: Female

DRUGS (7)
  1. SUBOXONE [Suspect]
     Active Substance: BUPRENORPHINE HYDROCHLORIDE\NALOXONE HYDROCHLORIDE
     Indication: DRUG DEPENDENCE
     Dosage: UNK
     Route: 042
  2. QUETIAPINE. [Concomitant]
     Active Substance: QUETIAPINE
     Indication: PRODUCT USED FOR UNKNOWN INDICATION
  3. ALPRAZOLAM. [Concomitant]
     Active Substance: ALPRAZOLAM
     Indication: PRODUCT USED FOR UNKNOWN INDICATION
     Dosage: UNK
     Route: 065
  4. BENZODIAZEPINE DERIVATIVES [Concomitant]
     Active Substance: BENZODIAZEPINE
     Indication: PRODUCT USED FOR UNKNOWN INDICATION
     Dosage: UNK
     Route: 065
  5. ALCOHOL. [Suspect]
     Active Substance: ALCOHOL
     Indication: PRODUCT USED FOR UNKNOWN INDICATION
     Dosage: UNK
     Route: 065
  6. ANTIDEPRESSANTS [Concomitant]
     Active Substance: UNSPECIFIED INGREDIENT
     Indication: DEPRESSION
     Dosage: UNK
     Route: 065
  7. CLONAZEPAM. [Concomitant]
     Active Substance: CLONAZEPAM
     Indication: PRODUCT USED FOR UNKNOWN INDICATION
     Dosage: UNK
     Route: 065

REACTIONS (21)
  - Pulmonary embolism [Unknown]
  - Alcohol abuse [Unknown]
  - Pneumonia [Unknown]
  - Decreased appetite [Unknown]
  - Adverse event [Unknown]
  - Endocarditis [Unknown]
  - Deep vein thrombosis [Unknown]
  - Stomatitis [Unknown]
  - Circulatory collapse [Fatal]
  - Intervertebral discitis [Unknown]
  - Nephritis [Unknown]
  - Insomnia [Unknown]
  - Periostitis [Unknown]
  - Weight decreased [Unknown]
  - Respiratory arrest [Fatal]
  - Hepatitis C [Unknown]
  - Intentional product use issue [Unknown]
  - Drug dependence [Unknown]
  - Blindness unilateral [Unknown]
  - Gait inability [Unknown]
  - Tooth disorder [Unknown]

NARRATIVE: CASE EVENT DATE: 2015
